FAERS Safety Report 12789543 (Version 1)
Quarter: 2016Q3

REPORT INFORMATION
  Report Type: Spontaneous
  Country: DK (occurrence: DK)
  Receive Date: 20160928
  Receipt Date: 20160928
  Transmission Date: 20161109
  Serious: Yes (Hospitalization)
  Sender: FDA-Public Use
  Company Number: DK-TEVA-694606ACC

PATIENT
  Age: 50 Year
  Sex: Female
  Weight: 60 kg

DRUGS (4)
  1. OXAPAX [Suspect]
     Active Substance: OXAZEPAM
     Indication: STRESS
     Dosage: STRENGTH: 15 MG.
     Route: 048
  2. ALOPAM [Suspect]
     Active Substance: OXAZEPAM
     Indication: STRESS
     Dosage: STRENGTH: 15 MG.DOSIS PER DAY HAD AN AVERAGE OF 8 TABLETS OF 15 MG
     Route: 048
  3. ELTROXIN [Concomitant]
     Active Substance: LEVOTHYROXINE
     Indication: HYPOTHYROIDISM
     Dosage: STRENGTH: 50 MICROGRAMS. DOSAGE: SEE NARRATIVE.
     Route: 048
     Dates: start: 2008, end: 20160318
  4. LITHIUM CARBONATE ^OBA^ [Concomitant]
     Indication: BIPOLAR I DISORDER
     Dosage: 1 DOSAGE FORMS DAILY; STRENGTH: 300MG (8,1 MMOL LI+).
     Route: 048
     Dates: start: 2000, end: 2015

REACTIONS (4)
  - Drug withdrawal syndrome [Recovered/Resolved]
  - Off label use [Recovered/Resolved]
  - Drug dependence [Recovered/Resolved]
  - Disturbance in attention [Recovering/Resolving]

NARRATIVE: CASE EVENT DATE: 200610
